FAERS Safety Report 6336406-3 (Version None)
Quarter: 2009Q3

REPORT INFORMATION
  Report Type: 
  Country: None (occurrence: None)
  Receive Date: 20090901
  Receipt Date: 20090820
  Transmission Date: 20100115
  Serious: Yes (Other)
  Sender: FDA-Public Use
  Company Number: FR-CELGENEUS-056-21880-09081473

PATIENT
  Sex: Male
  Weight: 67 kg

DRUGS (3)
  1. REVLIMID [Suspect]
     Route: 048
     Dates: start: 20090729, end: 20090818
  2. ARACYTINE [Suspect]
     Route: 051
     Dates: start: 20090729, end: 20090804
  3. DAUNORUBICIN HCL [Suspect]
     Route: 051
     Dates: start: 20090729, end: 20090731

REACTIONS (1)
  - CYTOLYTIC HEPATITIS [None]
